FAERS Safety Report 5273842-0 (Version None)
Quarter: 2007Q1

REPORT INFORMATION
  Report Type: 
  Country: None (occurrence: None)
  Receive Date: 20070323
  Receipt Date: 20070308
  Transmission Date: 20070707
  Serious: Yes (Hospitalization)
  Sender: FDA-Public Use
  Company Number: SEWYE970312MAR07

PATIENT
  Sex: Female

DRUGS (4)
  1. ENBREL [Suspect]
     Indication: SERONEGATIVE ARTHRITIS
     Route: 058
     Dates: start: 20060724, end: 20061027
  2. SULFASALAZINE [Concomitant]
     Dosage: UNSPECIFIED
     Route: 048
     Dates: start: 20050512
  3. METHOTREXATE [Concomitant]
     Indication: SERONEGATIVE ARTHRITIS
     Dosage: UNSPECIFIED
     Route: 048
     Dates: start: 20050512, end: 20050819
  4. METHOTREXATE [Concomitant]
     Dosage: UNSPECIFIED
     Route: 048
     Dates: start: 20060724, end: 20061027

REACTIONS (1)
  - BREAST CANCER [None]
